FAERS Safety Report 22053485 (Version 1)
Quarter: 2023Q1

REPORT INFORMATION
  Report Type: Spontaneous
  Country: RU (occurrence: RU)
  Receive Date: 20230302
  Receipt Date: 20230302
  Transmission Date: 20230418
  Serious: Yes (Other)
  Sender: FDA-Public Use
  Company Number: RU-ABBVIE-4325148

PATIENT
  Age: 44 Year
  Sex: Female
  Weight: 72 kg

DRUGS (1)
  1. LOPINAVIR\RITONAVIR [Suspect]
     Active Substance: LOPINAVIR\RITONAVIR
     Indication: HIV infection
     Route: 048
     Dates: start: 20160915, end: 20220623

REACTIONS (2)
  - Anaemia [Recovering/Resolving]
  - Blood triglycerides increased [Unknown]

NARRATIVE: CASE EVENT DATE: 20220601
